FAERS Safety Report 12434632 (Version 1)
Quarter: 2016Q2

REPORT INFORMATION
  Report Type: Report from Study
  Country: PE (occurrence: PE)
  Receive Date: 20160603
  Receipt Date: 20160603
  Transmission Date: 20160815
  Serious: Yes (Other)
  Sender: FDA-Public Use
  Company Number: PE-009507513-1606PER000605

PATIENT
  Age: 3 Year
  Sex: Female

DRUGS (4)
  1. SINGULAIR [Suspect]
     Active Substance: MONTELUKAST SODIUM
     Indication: HYPERSENSITIVITY
     Dosage: 5 MG, QD
     Route: 048
     Dates: start: 201603
  2. NASONEX [Suspect]
     Active Substance: MOMETASONE FUROATE
     Indication: BRONCHIOLITIS
     Dosage: 1 SPRAY IN EACH NOSTRIL (2 APPLICATIONS DAILY IN TOTAL)
     Route: 045
     Dates: start: 2013
  3. NASONEX [Suspect]
     Active Substance: MOMETASONE FUROATE
     Indication: HYPERSENSITIVITY
     Dosage: 1 SPRAY IN EACH NOSTRIL (2 APPLICATIONS DAILY IN TOTAL)
     Route: 045
     Dates: start: 201603, end: 20160429
  4. SINGULAIR [Suspect]
     Active Substance: MONTELUKAST SODIUM
     Indication: BRONCHIOLITIS
     Dosage: 5 MG, QD
     Route: 048
     Dates: start: 2013

REACTIONS (7)
  - Pneumonia [Unknown]
  - Pyrexia [Unknown]
  - Prescribed overdose [Unknown]
  - Off label use [Unknown]
  - Bronchitis [Unknown]
  - Drug administered to patient of inappropriate age [Unknown]
  - Influenza [Unknown]

NARRATIVE: CASE EVENT DATE: 2013
